FAERS Safety Report 7551342-2 (Version None)
Quarter: 2011Q2

REPORT INFORMATION
  Report Type: 
  Country: None (occurrence: None)
  Receive Date: 20110616
  Receipt Date: 20110606
  Transmission Date: 20111010
  Serious: Yes (Hospitalization)
  Sender: FDA-Public Use
  Company Number: US-PFIZER INC-2011109339

PATIENT
  Age: 52 Year
  Sex: Male

DRUGS (2)
  1. CETUXIMAB [Suspect]
     Indication: COLORECTAL CANCER
     Dosage: 500 MG/M2,1/2 WEEK
     Dates: start: 20110211, end: 20110429
  2. IRINOTECAN HCL [Suspect]
     Indication: COLORECTAL CANCER
     Dosage: 125 MG/M2, 1/2 WEEK
     Dates: start: 20110211, end: 20110429

REACTIONS (2)
  - HERPES ZOSTER [None]
  - BACK PAIN [None]
